FAERS Safety Report 9238868 (Version 1)
Quarter: 2013Q2

REPORT INFORMATION
  Report Type: Spontaneous
  Country: US (occurrence: None)
  Receive Date: 20130417
  Receipt Date: 20130417
  Transmission Date: 20140414
  Serious: No
  Sender: FDA-Public Use
  Company Number: None

PATIENT
  Age: 66 Year
  Sex: Male
  Weight: 102.06 kg

DRUGS (4)
  1. TIMOLOL [Suspect]
     Indication: GLAUCOMA
     Dosage: 1 DROP BID OPHTHALMIC
     Route: 047
  2. TRUSOPT [Suspect]
     Dosage: 1 DROP BID OPHTHALMIC
     Route: 047
  3. LUMIGAN [Concomitant]
  4. ALPHAGAN [Concomitant]

REACTIONS (4)
  - Sensation of foreign body [None]
  - Discomfort [None]
  - Eye disorder [None]
  - Product substitution issue [None]
